FAERS Safety Report 7412999-X (Version None)
Quarter: 2011Q2

REPORT INFORMATION
  Report Type: 
  Country: None (occurrence: None)
  Receive Date: 20110413
  Receipt Date: 20110401
  Transmission Date: 20111010
  Serious: Yes (Hospitalization, Disabling, Other)
  Sender: FDA-Public Use
  Company Number: PHHY2010FR87514

PATIENT
  Sex: Female

DRUGS (9)
  1. VINCRISTINE [Suspect]
     Indication: ACUTE LYMPHOCYTIC LEUKAEMIA
     Dosage: 2 MG/DAY
     Route: 042
     Dates: start: 20100517, end: 20100922
  2. VINDESINE [Concomitant]
     Dosage: UNK
  3. GLEEVEC [Suspect]
     Indication: ACUTE LYMPHOCYTIC LEUKAEMIA
     Dosage: 600 MG/DAY
     Route: 048
     Dates: start: 20100517
  4. METHOTREXATE [Suspect]
     Indication: ACUTE LYMPHOCYTIC LEUKAEMIA
     Dosage: 15 MG/DAY
     Route: 037
     Dates: start: 20100521, end: 20100901
  5. ARACYTINE [Suspect]
     Indication: ACUTE LYMPHOCYTIC LEUKAEMIA
     Dosage: 40 MG/ DAY
     Route: 042
     Dates: end: 20100901
  6. DECTANCYL [Concomitant]
     Indication: ACUTE LYMPHOCYTIC LEUKAEMIA
     Dosage: 20 MG PER DAY
     Route: 048
     Dates: start: 20100517, end: 20100901
  7. GLEEVEC [Suspect]
     Dosage: 400 MG/ DAY
     Route: 048
     Dates: start: 20101117
  8. DEPOCYT [Suspect]
     Indication: ACUTE LYMPHOCYTIC LEUKAEMIA
     Dosage: 40 MG/ DAY
     Route: 037
     Dates: end: 20100901
  9. DEPO-MEDROL [Concomitant]
     Dosage: 40 MG, UNK
     Route: 037
     Dates: start: 20100521, end: 20100901

REACTIONS (16)
  - SENSORIMOTOR DISORDER [None]
  - ATAXIA [None]
  - CHONDROCALCINOSIS [None]
  - URINARY TRACT INFECTION [None]
  - FAECAL INCONTINENCE [None]
  - WHITE BLOOD CELL COUNT DECREASED [None]
  - INFECTION [None]
  - HYPOAESTHESIA [None]
  - GAIT DISTURBANCE [None]
  - URINARY INCONTINENCE [None]
  - AXONAL NEUROPATHY [None]
  - PROTEUS INFECTION [None]
  - HAEMOGLOBIN DECREASED [None]
  - DECREASED VIBRATORY SENSE [None]
  - MEAN CELL VOLUME INCREASED [None]
  - NEUTROPHIL COUNT INCREASED [None]
